FAERS Safety Report 6652452-4 (Version None)
Quarter: 2010Q1

REPORT INFORMATION
  Report Type: 
  Country: None (occurrence: None)
  Receive Date: 20100325
  Receipt Date: 20100319
  Transmission Date: 20100710
  Serious: Yes (Hospitalization, Disabling, Other)
  Sender: FDA-Public Use
  Company Number: US-MERCK-0906USA01733

PATIENT
  Age: 91 Year
  Sex: Female

DRUGS (3)
  1. FOSAMAX [Suspect]
     Indication: OSTEOPOROSIS
     Route: 048
     Dates: start: 20001101, end: 20080211
  2. FOSAMAX [Suspect]
     Route: 048
     Dates: start: 20080310, end: 20080602
  3. ESTROPIPATE [Concomitant]
     Indication: HORMONE THERAPY
     Route: 065
     Dates: start: 19890101

REACTIONS (40)
  - AGITATION [None]
  - ANXIETY [None]
  - AXILLARY VEIN THROMBOSIS [None]
  - BUNION [None]
  - CARDIAC FAILURE CONGESTIVE [None]
  - CATARACT [None]
  - COLONIC POLYP [None]
  - CONDUCTIVE DEAFNESS [None]
  - CONFUSIONAL STATE [None]
  - CONSTIPATION [None]
  - DACRYOCYSTITIS [None]
  - DACRYOSTENOSIS ACQUIRED [None]
  - DIVERTICULUM [None]
  - DIZZINESS [None]
  - DYSPHAGIA [None]
  - DYSPNOEA [None]
  - FISTULA DISCHARGE [None]
  - GINGIVAL PAIN [None]
  - GLAUCOMA [None]
  - HAEMORRHOIDS [None]
  - HALLUCINATION [None]
  - HYPONATRAEMIA [None]
  - IMPAIRED HEALING [None]
  - LACRIMAL MUCOCOELE [None]
  - NEURITIS [None]
  - OEDEMA PERIPHERAL [None]
  - ORAL INFECTION [None]
  - ORAL TORUS [None]
  - ORTHOSTATIC HYPOTENSION [None]
  - OSTEOMYELITIS [None]
  - OSTEONECROSIS [None]
  - PAIN IN EXTREMITY [None]
  - PAIN IN JAW [None]
  - PNEUMONIA [None]
  - RECTAL HAEMORRHAGE [None]
  - SEBORRHOEIC KERATOSIS [None]
  - TOOTH FRACTURE [None]
  - TOOTHACHE [None]
  - VERTIGO POSITIONAL [None]
  - WEIGHT INCREASED [None]
